FAERS Safety Report 9016015 (Version 1)
Quarter: 2013Q1

REPORT INFORMATION
  Report Type: Spontaneous
  Country: US (occurrence: US)
  Receive Date: 20130116
  Receipt Date: 20130116
  Transmission Date: 20140127
  Serious: Yes (Other)
  Sender: FDA-Public Use
  Company Number: PHEH2013US001110

PATIENT
  Sex: Female

DRUGS (8)
  1. EXFORGE [Suspect]
     Indication: HYPERTENSION
     Dosage: VALSARTAN 160MG AND AMLODIPINE 05MG, UNK
     Route: 048
  2. ALFALFA [Suspect]
     Dosage: UNK UKN, UNK
  3. MICARDIS [Suspect]
     Dosage: UNK UKN, UNK
  4. THYROID PILL [Concomitant]
     Dosage: UNK UKN, UNK
  5. ZANTAC [Concomitant]
     Dosage: UNK UKN, UNK
  6. EZ-GEST [Concomitant]
     Dosage: UNK UKN, UNK
  7. PRILOSEC [Concomitant]
     Dosage: UNK UKN, UNK
  8. COCUTEN [Concomitant]
     Dosage: UNK UKN, UNK

REACTIONS (4)
  - Viral infection [Unknown]
  - Cough [Unknown]
  - Dyspnoea [Unknown]
  - Cardiomegaly [Unknown]
